FAERS Safety Report 8132891-5 (Version None)
Quarter: 2012Q1

REPORT INFORMATION
  Report Type: 
  Country: None (occurrence: None)
  Receive Date: 20120213
  Receipt Date: 20120208
  Transmission Date: 20120608
  Serious: No
  Sender: FDA-Public Use
  Company Number: US-BAYER-2012-014043

PATIENT
  Age: 80 Year
  Sex: Female
  Weight: 63 kg

DRUGS (11)
  1. SIMVASTATIN [Concomitant]
  2. ASCORBIC ACID [Concomitant]
  3. MULTIVITAMIN PREPARATION + MINERAL SUPPLEMENT [Concomitant]
  4. CALCIUM [Concomitant]
  5. MAPAP [Concomitant]
  6. ACETYLSALICYLIC ACID SRT [Concomitant]
     Dosage: 325 MG, UNK
  7. ALEVE (CAPLET) [Suspect]
     Indication: ARTHRITIS
     Dosage: 1 DF, BID
     Route: 048
  8. BIOFLEX [Concomitant]
  9. ACETYLSALICYLIC ACID SRT [Concomitant]
     Indication: ISCHAEMIC HEART DISEASE PROPHYLAXIS
     Route: 048
  10. METOCLOPRAMIDE [Concomitant]
  11. VITAMIN D [Concomitant]

REACTIONS (1)
  - NO ADVERSE EVENT [None]
